FAERS Safety Report 8800479 (Version 5)
Quarter: 2014Q3

REPORT INFORMATION
  Report Type: Report from Study
  Country: MX (occurrence: MX)
  Receive Date: 20120921
  Receipt Date: 20140901
  Transmission Date: 20150326
  Serious: Yes (Hospitalization)
  Sender: FDA-Public Use
  Company Number: PHHY2012MX081044

PATIENT
  Age: 34 Year
  Sex: Male

DRUGS (7)
  1. TEGRETOL-XR [Suspect]
     Active Substance: CARBAMAZEPINE
     Dosage: 0.5 DF, BID (0.5 DF AT MORNING AND 0.5 DF AT NIGHT (TEGRETOL LC 400 MG))
     Route: 048
  2. TEGRETOL [Suspect]
     Active Substance: CARBAMAZEPINE
     Dosage: 400 MG, DAILY
  3. TEGRETOL-XR [Suspect]
     Active Substance: CARBAMAZEPINE
     Dosage: 3 DF (TEGRETOL LC 400 MG) DAILY
     Route: 048
  4. TEGRETOL-XR [Suspect]
     Active Substance: CARBAMAZEPINE
     Dosage: 6 DF (TEGRETOL LC 200 MG) DAILY
     Route: 048
  5. TOPAMAX [Concomitant]
     Active Substance: TOPIRAMATE
     Indication: EPILEPSY
     Dosage: 2 DF DAILY
     Dates: start: 2011
  6. KEPPRA [Concomitant]
     Active Substance: LEVETIRACETAM
     Dosage: 2 TABLETS DAILY
     Route: 048
     Dates: start: 2009
  7. TEGRETOL-XR [Suspect]
     Active Substance: CARBAMAZEPINE
     Indication: EPILEPSY
     Dosage: 2.5 DF (TEGREOL LC, 400 MG) DAILY
     Route: 048
     Dates: start: 1994

REACTIONS (2)
  - Convulsion [Not Recovered/Not Resolved]
  - Urinary tract infection [Recovered/Resolved]

NARRATIVE: CASE EVENT DATE: 20120913
